FAERS Safety Report 17850208 (Version 1)
Quarter: 2020Q2

REPORT INFORMATION
  Report Type: Report from Study
  Country: CA (occurrence: CA)
  Receive Date: 20200602
  Receipt Date: 20200602
  Transmission Date: 20200714
  Serious: Yes (Hospitalization)
  Sender: FDA-Public Use
  Company Number: CA-PFIZER INC-2020212676

PATIENT
  Age: 50 Year
  Sex: Male

DRUGS (20)
  1. LOSEC [Suspect]
     Active Substance: OMEPRAZOLE
     Dosage: 40 MG
  2. LOSEC [Suspect]
     Active Substance: OMEPRAZOLE
     Dosage: 20 MG
  3. PULMICORT TURBUHALER [Suspect]
     Active Substance: BUDESONIDE
     Dosage: 3 DF, 2X/DAY
  4. VITAMIN D [VITAMIN D NOS] [Suspect]
     Active Substance: VITAMIN D NOS
     Dosage: 20000 UG, 1X/DAY
  5. SALINE NASAL MIST [Concomitant]
  6. DOXYCYCLINE. [Suspect]
     Active Substance: DOXYCYCLINE
     Dosage: 100 MG, 2X/DAY
  7. PREDNISONE. [Suspect]
     Active Substance: PREDNISONE
     Dosage: 5 MG, 1X/DAY
  8. GLUCOSAMINE [Suspect]
     Active Substance: GLUCOSAMINE
  9. OMEGA-3 [DOCOSAHEXAENOIC ACID;EICOSAPENTAENOIC ACID] [Suspect]
     Active Substance: DOCONEXENT\ICOSAPENT
  10. NUTRIENTS NOS [Suspect]
     Active Substance: UNSPECIFIED INGREDIENT
  11. SPIRIVA RESPIMAT [Suspect]
     Active Substance: TIOTROPIUM BROMIDE
     Dosage: 3 DF, 1X/DAY
     Route: 055
  12. LORAZEPAM. [Suspect]
     Active Substance: LORAZEPAM
     Dosage: 0.5 MG
  13. ADVAIR HFA [Suspect]
     Active Substance: FLUTICASONE PROPIONATE\SALMETEROL XINAFOATE
     Dosage: 2 DF, 2X/DAY
  14. TOBRAMYCIN. [Suspect]
     Active Substance: TOBRAMYCIN
     Dosage: 160 MG, 2X/DAY
     Route: 055
  15. VENTOLINE [SALBUTAMOL] [Suspect]
     Active Substance: ALBUTEROL SULFATE
     Dosage: 5 DF, 2X/DAY
  16. VITAMIN B12 [VITAMIN B12 NOS] [Suspect]
     Active Substance: CYANOCOBALAMIN
     Dosage: 10 MG, 1X/DAY
  17. VITAMIN K [Suspect]
     Active Substance: PHYTONADIONE
  18. FLINTSTONES [Concomitant]
     Dosage: 2 DF, 1X/DAY
  19. MEPOLIZUMAB [Suspect]
     Active Substance: MEPOLIZUMAB
     Indication: ASTHMA
     Dosage: 100 MG
     Route: 042
  20. VITAMIN E NOS [Suspect]
     Active Substance: .ALPHA.-TOCOPHEROL
     Dosage: 400 UG, 1X/DAY

REACTIONS (8)
  - Wheezing [Unknown]
  - Infection [Unknown]
  - Productive cough [Unknown]
  - Sleep disorder due to a general medical condition [Unknown]
  - Asthma [Unknown]
  - Loss of personal independence in daily activities [Unknown]
  - Therapeutic product effect incomplete [Unknown]
  - Dyspnoea [Unknown]
